FAERS Safety Report 16125918 (Version 1)
Quarter: 2019Q1

REPORT INFORMATION
  Report Type: Spontaneous
  Country: US (occurrence: US)
  Receive Date: 20190328
  Receipt Date: 20190328
  Transmission Date: 20190418
  Serious: Yes (Other)
  Sender: FDA-Public Use
  Company Number: US-AMGEN-USASP2019045434

PATIENT
  Age: 55 Year
  Sex: Female

DRUGS (8)
  1. MELOXICAMUM [Concomitant]
     Indication: MIGRAINE
     Dosage: UNK
  2. LORAZEPAM. [Concomitant]
     Active Substance: LORAZEPAM
     Indication: ARTHRITIS
     Dosage: UNK
  3. AIMOVIG [Suspect]
     Active Substance: ERENUMAB-AOOE
     Indication: MIGRAINE
     Dosage: 140 MILLIGRAM, QMO
     Route: 065
     Dates: start: 20181009, end: 20181211
  4. TOPAMAX [Concomitant]
     Active Substance: TOPIRAMATE
     Indication: SEIZURE
     Dosage: 50 MILLIGRAM
  5. LORAZEPAM. [Concomitant]
     Active Substance: LORAZEPAM
     Indication: MIGRAINE
  6. OCUVITE [ASCORBIC ACID;BETACAROTENE;COPPER;TOCOFERSOLAN;ZINC] [Concomitant]
     Indication: EYE DISORDER
     Dosage: UNK
  7. VITAMIN B12 [Concomitant]
     Active Substance: CYANOCOBALAMIN
     Dosage: UNK
  8. VITAMIN C [Concomitant]
     Active Substance: ASCORBIC ACID
     Dosage: UNK

REACTIONS (7)
  - Hypoaesthesia [Unknown]
  - Anger [Recovered/Resolved]
  - Disturbance in attention [Unknown]
  - Sleep disorder due to a general medical condition [Unknown]
  - Mental impairment [Unknown]
  - Therapy non-responder [Unknown]
  - Migraine [Not Recovered/Not Resolved]

NARRATIVE: CASE EVENT DATE: 2018
